FAERS Safety Report 15278104 (Version 5)
Quarter: 2018Q3

REPORT INFORMATION
  Report Type: Report from Study
  Country: US (occurrence: US)
  Receive Date: 20180814
  Receipt Date: 20180918
  Transmission Date: 20181010
  Serious: Yes (Hospitalization)
  Sender: FDA-Public Use
  Company Number: US-ACTELION-A-US2018-177314

PATIENT
  Age: 32 Year
  Sex: Female
  Weight: 58.5 kg

DRUGS (3)
  1. VELETRI [Suspect]
     Active Substance: EPOPROSTENOL
     Dosage: 60 NG/KG, PER MIN
     Route: 042
  2. TYVASO [Concomitant]
     Active Substance: TREPROSTINIL
  3. VELETRI [Suspect]
     Active Substance: EPOPROSTENOL
     Indication: PULMONARY ARTERIAL HYPERTENSION
     Dosage: 7 NG/KG, PER MIN
     Route: 042

REACTIONS (12)
  - Flushing [Unknown]
  - Eructation [Unknown]
  - Back pain [Unknown]
  - Diarrhoea [Unknown]
  - Abdominal distension [Unknown]
  - Pain in jaw [Unknown]
  - Exposure during pregnancy [Unknown]
  - Decreased appetite [Unknown]
  - Oedema peripheral [Unknown]
  - Arthralgia [Unknown]
  - Flatulence [Unknown]
  - Critical illness [Not Recovered/Not Resolved]
